FAERS Safety Report 8733643 (Version 2)
Quarter: 2013Q1

REPORT INFORMATION
  Report Type: Spontaneous
  Country: BR (occurrence: BR)
  Receive Date: 20120821
  Receipt Date: 20130129
  Transmission Date: 20140127
  Serious: Yes (Other)
  Sender: FDA-Public Use
  Company Number: PHHY2012BR071116

PATIENT
  Age: 73 Year
  Sex: Male
  Weight: 93 kg

DRUGS (5)
  1. DIOVAN AMLO FIX [Suspect]
     Indication: HYPERTENSION
     Dosage: 1 DF (160/5 MG), A DAY
     Route: 048
  2. ATORVASTATIN [Concomitant]
     Indication: BLOOD CHOLESTEROL
     Dosage: 1 DF, DAILY
     Route: 048
  3. SOMALGIN [Concomitant]
     Indication: COAGULOPATHY
     Dosage: DAILY1 DF, UNK
     Route: 048
  4. CLOPIDOGREL [Concomitant]
     Indication: INFARCTION
     Dosage: 1 DF, DAILY
     Route: 048
     Dates: start: 201210
  5. GLUCOREUMIN [Concomitant]
     Indication: CHONDROPATHY
     Dosage: 1 DF, DAILY
     Route: 048
     Dates: start: 201212

REACTIONS (4)
  - Adenocarcinoma [Recovered/Resolved]
  - Lymphoma [Recovered/Resolved]
  - Infarction [Recovering/Resolving]
  - Muscle disorder [Recovering/Resolving]
